FAERS Safety Report 16364754 (Version 1)
Quarter: 2019Q2

REPORT INFORMATION
  Report Type: Spontaneous
  Country: ES (occurrence: ES)
  Receive Date: 20190529
  Receipt Date: 20190529
  Transmission Date: 20190711
  Serious: Yes (Other)
  Sender: FDA-Public Use
  Company Number: ES-ASTRAZENECA-2019SE78819

PATIENT
  Sex: Male
  Weight: 6.9 kg

DRUGS (1)
  1. OMEPRAZOL [Suspect]
     Active Substance: OMEPRAZOLE
     Indication: INFANTILE SPITTING UP
     Route: 048
     Dates: start: 20190326, end: 20190502

REACTIONS (2)
  - Skin hyperpigmentation [Recovering/Resolving]
  - Hypertrichosis [Recovering/Resolving]

NARRATIVE: CASE EVENT DATE: 20190413
